FAERS Safety Report 4349943-8 (Version None)
Quarter: 2004Q2

REPORT INFORMATION
  Report Type: 
  Country: None (occurrence: None)
  Receive Date: 20040428
  Receipt Date: 20040409
  Transmission Date: 20050107
  Serious: Yes (Other)
  Sender: FDA-Public Use
  Company Number: A0506453A

PATIENT
  Age: 25 Year
  Sex: Female

DRUGS (3)
  1. NICODERM CQ [Suspect]
     Indication: EX-SMOKER
     Dosage: 21 MG TRANSDERMAL
     Route: 062
     Dates: start: 19890101, end: 19890101
  2. NICODERM CQ [Suspect]
     Indication: EX-SMOKER
     Dosage: 21 MG TRANSDERMAL
     Route: 062
     Dates: start: 20000101, end: 20000101
  3. NICODERM CQ [Suspect]
     Indication: EX-SMOKER
     Dosage: 21 MG, TRANSDERMAL
     Route: 062
     Dates: start: 20040405

REACTIONS (10)
  - APPLICATION SITE BURNING [None]
  - APPLICATION SITE DERMATITIS [None]
  - APPLICATION SITE PRURITUS [None]
  - DRUG EFFECT DECREASED [None]
  - DYSPNOEA [None]
  - HEART RATE INCREASED [None]
  - MYOCARDIAL INFARCTION [None]
  - NICOTINE DEPENDENCE [None]
  - PALPITATIONS [None]
  - TREMOR [None]
